FAERS Safety Report 17296264 (Version 2)
Quarter: 2020Q1

REPORT INFORMATION
  Report Type: Spontaneous
  Country: GB (occurrence: GB)
  Receive Date: 20200121
  Receipt Date: 20200122
  Transmission Date: 20200409
  Serious: Yes (Other)
  Sender: FDA-Public Use
  Company Number: GB-PFIZER INC-2020021914

PATIENT
  Age: 48 Year
  Sex: Male

DRUGS (4)
  1. LYRICA [Suspect]
     Active Substance: PREGABALIN
     Dosage: 25 MG, 3X/DAY (25 MG MORNING, 25 MG LUNCHTIME, 25 MG EVENING)
  2. LYRICA [Suspect]
     Active Substance: PREGABALIN
     Indication: PAIN
     Dosage: 50 MG, 3X/DAY
  3. LYRICA [Suspect]
     Active Substance: PREGABALIN
     Indication: SCIATICA
     Dosage: 300 MG, DAILY
  4. LYRICA [Suspect]
     Active Substance: PREGABALIN
     Dosage: 275 MG, DAILY

REACTIONS (17)
  - Feeling abnormal [Unknown]
  - Urine analysis abnormal [Unknown]
  - Hyperhidrosis [Unknown]
  - Depressed mood [Unknown]
  - Emotional distress [Unknown]
  - Sleep terror [Unknown]
  - Drug dependence [Unknown]
  - Anxiety [Unknown]
  - Drug withdrawal syndrome [Unknown]
  - Crying [Unknown]
  - Suicidal ideation [Unknown]
  - Paraesthesia [Unknown]
  - Anger [Unknown]
  - Fear [Unknown]
  - Tremor [Unknown]
  - Psychiatric symptom [Unknown]
  - Aggression [Unknown]

NARRATIVE: CASE EVENT DATE: 20200116
